FAERS Safety Report 14881397 (Version 1)
Quarter: 2018Q2

REPORT INFORMATION
  Report Type: Spontaneous
  Country: US (occurrence: US)
  Receive Date: 20180425
  Receipt Date: 20180425
  Transmission Date: 20180711
  Serious: No
  Sender: FDA-Public Use
  Company Number: None

PATIENT
  Sex: Male
  Weight: 77.56 kg

DRUGS (2)
  1. FORTEO [Suspect]
     Active Substance: TERIPARATIDE
     Indication: OSTEOPOROSIS
     Route: 058
     Dates: start: 201804
  2. FORTEO [Suspect]
     Active Substance: TERIPARATIDE
     Indication: TYPE IIA HYPERLIPIDAEMIA
     Route: 058
     Dates: start: 201804

REACTIONS (1)
  - Product use in unapproved indication [None]
